FAERS Safety Report 4501752-2 (Version None)
Quarter: 2004Q4

REPORT INFORMATION
  Report Type: 
  Country: None (occurrence: None)
  Receive Date: 20041115
  Receipt Date: 20041115
  Transmission Date: 20050328
  Serious: Yes (Life-Threatening, Disabling)
  Sender: FDA-Public Use
  Company Number: None

PATIENT
  Age: 41 Year
  Sex: Male
  Weight: 93 kg

DRUGS (1)
  1. LARIAM [Suspect]
     Indication: MALARIA
     Dosage: 250MG   ONCE WEEKLY   ORAL
     Route: 048
     Dates: start: 20031206, end: 20031220

REACTIONS (31)
  - AMNESIA [None]
  - ANOREXIA [None]
  - AUTISM [None]
  - CHILLS [None]
  - COORDINATION ABNORMAL [None]
  - DECREASED INTEREST [None]
  - DISTURBANCE IN ATTENTION [None]
  - EMOTIONAL DISORDER [None]
  - ERECTILE DYSFUNCTION [None]
  - FEAR [None]
  - FEELING ABNORMAL [None]
  - HEADACHE [None]
  - HYPERHIDROSIS [None]
  - HYPOAESTHESIA [None]
  - INTESTINAL FUNCTIONAL DISORDER [None]
  - LOSS OF LIBIDO [None]
  - MAJOR DEPRESSION [None]
  - MUSCLE TWITCHING [None]
  - NAUSEA [None]
  - NIGHTMARE [None]
  - PAIN [None]
  - PANIC ATTACK [None]
  - PARANOIA [None]
  - SELF ESTEEM DECREASED [None]
  - SENSORY DISTURBANCE [None]
  - SUICIDAL IDEATION [None]
  - TEMPERATURE REGULATION DISORDER [None]
  - THINKING ABNORMAL [None]
  - TINNITUS [None]
  - TREMOR [None]
  - WEIGHT DECREASED [None]
